FAERS Safety Report 20826283 (Version 1)
Quarter: 2022Q2

REPORT INFORMATION
  Report Type: Spontaneous
  Country: US (occurrence: US)
  Receive Date: 20220513
  Receipt Date: 20220513
  Transmission Date: 20220721
  Serious: No
  Sender: FDA-Public Use
  Company Number: US-BAYER-2022A069153

PATIENT
  Age: 66 Year
  Sex: Female

DRUGS (1)
  1. MIRALAX [Suspect]
     Active Substance: POLYETHYLENE GLYCOL 3350
     Dosage: 2 CUPS WITH 2 COFFEE IN THE MORNING AND 2 CUPS OF MIRALAX WITH 2 WATER AT NIGHT
     Route: 048

REACTIONS (1)
  - Wrong technique in product usage process [Unknown]
